FAERS Safety Report 8987701 (Version 1)
Quarter: 2012Q4

REPORT INFORMATION
  Report Type: 
  Country: IT (occurrence: IT)
  Receive Date: 20121227
  Receipt Date: 20121227
  Transmission Date: 20130627
  Serious: Yes (Hospitalization)
  Sender: FDA-Public Use
  Company Number: PHHY2012IT119923

PATIENT
  Age: 60 Year
  Sex: Female

DRUGS (2)
  1. PACLITAXEL [Suspect]
     Indication: BREAST CANCER METASTATIC
     Dosage: 130 mg, Cyclic dose
     Route: 042
     Dates: start: 20111026, end: 20120808
  2. AVASTIN [Suspect]
     Indication: BREAST CANCER METASTATIC
     Dosage: 730 mg, Cyclic dose
     Route: 042
     Dates: start: 20111026, end: 20121024

REACTIONS (1)
  - Cerebrovascular accident [Recovered/Resolved with Sequelae]
